FAERS Safety Report 22656546 (Version 1)
Quarter: 2023Q2

REPORT INFORMATION
  Report Type: Report from Study
  Country: AR (occurrence: AR)
  Receive Date: 20230630
  Receipt Date: 20230630
  Transmission Date: 20230722
  Serious: Yes (Other)
  Sender: FDA-Public Use
  Company Number: AR-002147023-NVSC2023AR147716

PATIENT
  Age: 13 Year
  Sex: Male

DRUGS (1)
  1. OMNITROPE [Suspect]
     Active Substance: SOMATROPIN
     Indication: Small for dates baby
     Dosage: UNK
     Route: 058
     Dates: start: 20211015

REACTIONS (4)
  - Haemorrhage [Unknown]
  - Drug hypersensitivity [Unknown]
  - Feeling hot [Unknown]
  - Haematoma [Unknown]

NARRATIVE: CASE EVENT DATE: 20230529
